FAERS Safety Report 4394553-X (Version None)
Quarter: 2004Q3

REPORT INFORMATION
  Report Type: 
  Country: None (occurrence: None)
  Receive Date: 20040707
  Receipt Date: 20040623
  Transmission Date: 20050211
  Serious: No
  Sender: FDA-Public Use
  Company Number: 04P-163-0264701-00

PATIENT
  Age: 47 Year
  Sex: Female
  Weight: 83.9154 kg

DRUGS (4)
  1. BIAXIN [Suspect]
     Indication: HELICOBACTER INFECTION
     Dosage: ONCE, PER ORAL
     Route: 048
     Dates: start: 20040604, end: 20040604
  2. LANSOPRAZOLE [Suspect]
     Indication: HELICOBACTER INFECTION
     Dosage: ONCE, PER ORAL
     Route: 048
     Dates: start: 20040604
  3. AMOXICILLIN [Suspect]
     Indication: HELICOBACTER INFECTION
     Dosage: ONCE, PER ORAL
     Route: 048
     Dates: start: 20040604, end: 20040604
  4. LORAZEPAM [Concomitant]

REACTIONS (4)
  - CHEST PAIN [None]
  - DYSPNOEA [None]
  - PRURITUS GENERALISED [None]
  - URTICARIA GENERALISED [None]
